FAERS Safety Report 8677817 (Version 2)
Quarter: 2012Q4

REPORT INFORMATION
  Report Type: 
  Country: US (occurrence: US)
  Receive Date: 20120723
  Receipt Date: 20120913
  Transmission Date: 20130627
  Serious: No
  Sender: FDA-Public Use
  Company Number: US-ENDO PHARMACEUTICALS INC.-OPCR20121606

PATIENT
  Sex: Female

DRUGS (2)
  1. OPANA ER [Suspect]
     Indication: PAIN
     Dosage: UNK
     Route: 048
     Dates: start: 2012
  2. OPANA ER [Concomitant]
     Indication: PAIN
     Dosage: UNK
     Route: 048
     Dates: end: 2012

REACTIONS (4)
  - Abdominal pain [Unknown]
  - Pruritus [Unknown]
  - Constipation [Unknown]
  - Drug ineffective [Not Recovered/Not Resolved]
